FAERS Safety Report 4510645-6 (Version None)
Quarter: 2004Q4

REPORT INFORMATION
  Report Type: 
  Country: None (occurrence: None)
  Receive Date: 20041122
  Receipt Date: 20041108
  Transmission Date: 20050328
  Serious: Yes (Other)
  Sender: FDA-Public Use
  Company Number: 2004-UK-00547UK

PATIENT
  Age: 41 Year
  Sex: Female

DRUGS (4)
  1. NEVIRAPINE (EU/1/97/055/001) (NEVIRAPINE) (NR) [Suspect]
     Dosage: 400 MG, PO
     Route: 048
  2. NELFINAVIR (NELFINAVIR) [Concomitant]
  3. DIDANOSINE [Concomitant]
  4. FOLATE SUPPLEMENT [Concomitant]

REACTIONS (3)
  - ABORTION INDUCED [None]
  - DRUG EXPOSURE DURING PREGNANCY [None]
  - INTRA-UTERINE DEATH [None]
